FAERS Safety Report 13931817 (Version 1)
Quarter: 2017Q3

REPORT INFORMATION
  Report Type: Spontaneous
  Country: US (occurrence: US)
  Receive Date: 20170904
  Receipt Date: 20170904
  Transmission Date: 20171127
  Serious: Yes (Death, Other)
  Sender: FDA-Public Use
  Company Number: US-ROCHE-1988591

PATIENT
  Age: 77 Year
  Sex: Female
  Weight: 43.3 kg

DRUGS (2)
  1. ACTIVASE [Suspect]
     Active Substance: ALTEPLASE
     Dosage: STARTED AT 21:27 ;ONGOING: NO
     Route: 041
     Dates: start: 20170826
  2. ACTIVASE [Suspect]
     Active Substance: ALTEPLASE
     Indication: PRODUCT USED FOR UNKNOWN INDICATION
     Dosage: NO
     Route: 040
     Dates: start: 20170826

REACTIONS (2)
  - Haemorrhagic transformation stroke [Unknown]
  - Death [Fatal]

NARRATIVE: CASE EVENT DATE: 20170826
